FAERS Safety Report 8933439 (Version 1)
Quarter: 2012Q4

REPORT INFORMATION
  Report Type: 
  Country: US (occurrence: US)
  Receive Date: 20121128
  Receipt Date: 20121128
  Transmission Date: 20130627
  Serious: Yes (Hospitalization)
  Sender: FDA-Public Use
  Company Number: US-009507513-1211USA009334

PATIENT
  Age: 50 Year
  Sex: Female
  Weight: 102.9 kg

DRUGS (18)
  1. TEMOZOLOMIDE [Suspect]
     Indication: GLIOBLASTOMA MULTIFORME
     Dosage: 200 mg/m2, qd
     Route: 048
     Dates: start: 20100514, end: 20100518
  2. TEMOZOLOMIDE [Suspect]
     Indication: GLIOSARCOMA
     Dosage: UNK
     Route: 048
     Dates: start: 20100216, end: 20100402
  3. TEMOZOLOMIDE [Suspect]
     Dosage: UNK
     Dates: start: 20100416, end: 2012
  4. BEVACIZUMAB [Suspect]
     Indication: GLIOBLASTOMA MULTIFORME
     Dosage: 10 mg/kg, qow
     Route: 042
     Dates: start: 20100514
  5. BEVACIZUMAB [Suspect]
     Indication: GLIOSARCOMA
     Dosage: UNK
     Dates: start: 20100416, end: 2012
  6. BEVACIZUMAB [Suspect]
     Dosage: UNK
     Dates: start: 20100216, end: 20120402
  7. TOPOTECAN HYDROCHLORIDE [Suspect]
     Indication: GLIOBLASTOMA MULTIFORME
     Dosage: 2 mg/m2, qd
     Route: 048
     Dates: start: 20100515, end: 20100519
  8. TOPOTECAN HYDROCHLORIDE [Suspect]
     Indication: GLIOSARCOMA
     Dosage: UNK
     Dates: start: 20100216, end: 20100402
  9. TOPOTECAN HYDROCHLORIDE [Suspect]
     Dosage: UNK
     Dates: start: 20100416, end: 2012
  10. ALLEGRA [Concomitant]
     Dosage: daily dose: 180mg
  11. PRILOSEC [Concomitant]
     Dosage: daily dose: 40mg
  12. DILANTIN [Concomitant]
     Dosage: 300 mg, qam
  13. DILANTIN [Concomitant]
     Dosage: 200 mg, qpm
  14. DETROL LA [Concomitant]
     Dosage: daily dose: 4mg
  15. TYLENOL [Concomitant]
     Dosage: 500 mg, q4h (as necessary)
     Route: 048
  16. ZOMIG [Concomitant]
     Dosage: 5 mg, 1 in 1 required
     Route: 048
  17. AMBIEN [Concomitant]
     Dosage: UNK, hs
     Route: 048
  18. POTASSIUM (UNSPECIFIED) [Concomitant]
     Dosage: daily dose: 10 mEq
     Route: 048

REACTIONS (6)
  - Mental impairment [Recovering/Resolving]
  - Leukopenia [Unknown]
  - Confusional state [Recovering/Resolving]
  - Hypokalaemia [Unknown]
  - Headache [Unknown]
  - Pyrexia [Unknown]
